FAERS Safety Report 9805796 (Version 7)
Quarter: 2015Q1

REPORT INFORMATION
  Report Type: Report from Study
  Country: TW (occurrence: TW)
  Receive Date: 20140109
  Receipt Date: 20150128
  Transmission Date: 20150721
  Serious: Yes (Death)
  Sender: FDA-Public Use
  Company Number: PHHY2014TW002037

PATIENT
  Age: 62 Year
  Sex: Male
  Weight: 55 kg

DRUGS (2)
  1. AMN107 [Suspect]
     Active Substance: NILOTINIB
     Indication: CHRONIC MYELOID LEUKAEMIA
     Dosage: 600 MG, UNK
     Route: 048
     Dates: start: 20131203, end: 20131229
  2. SEROQUEL [Concomitant]
     Active Substance: QUETIAPINE FUMARATE
     Indication: INSOMNIA
     Dosage: 25 MG, UNK
     Route: 065
     Dates: start: 20130227, end: 20131230

REACTIONS (15)
  - Sepsis [Fatal]
  - Aplastic anaemia [Fatal]
  - Neutropenia [Fatal]
  - Procalcitonin increased [Fatal]
  - Cough [Fatal]
  - Acute kidney injury [Fatal]
  - Hypocalcaemia [Fatal]
  - Productive cough [Fatal]
  - White blood cell count decreased [Fatal]
  - Septic shock [Fatal]
  - Platelet count decreased [Fatal]
  - Pyrexia [Fatal]
  - Respiratory failure [Fatal]
  - Chronic myeloid leukaemia [Fatal]
  - Fatigue [Fatal]

NARRATIVE: CASE EVENT DATE: 20131230
